FAERS Safety Report 8102727-7 (Version None)
Quarter: 2012Q1

REPORT INFORMATION
  Report Type: 
  Country: None (occurrence: None)
  Receive Date: 20120126
  Receipt Date: 20120111
  Transmission Date: 20120608
  Serious: Yes (Hospitalization, Other)
  Sender: FDA-Public Use
  Company Number: 2010BI037712

PATIENT
  Age: 73 Year
  Sex: Male
  Weight: 60 kg

DRUGS (9)
  1. ANTIHISTAMINES (ANTIHISTAMINES) [Concomitant]
  2. BAKTAR (BACTRIM [SULFAMETHOXAZOLE, TRIMETHOPRIM]) TABLET [Concomitant]
  3. ISONIAZID [Concomitant]
  4. CORTICOSTEROIDS (CORTICOSTEROIDS) [Concomitant]
  5. ZEVALIN [Suspect]
     Indication: FOLLICLE CENTRE LYMPHOMA, FOLLICULAR GRADE I, II, III STAGE III
     Dosage: 889 MBQ; QD; IV
     Route: 042
     Dates: start: 20090819, end: 20090819
  6. IBRITUMOMAB TIUXETAN + INDIUM (111 IN) (IBRITUMOMAB TIUXETAN) [Suspect]
     Indication: FOLLICLE CENTRE LYMPHOMA, FOLLICULAR GRADE I, II, III STAGE III
     Dosage: 130 MBQ;QD;IV
     Route: 042
  7. RITUXIMAB (RITUXIMAB) [Suspect]
     Indication: FOLLICLE CENTRE LYMPHOMA, FOLLICULAR GRADE I, II, III STAGE III
     Dosage: 250 MG/M2; QD; IV DRIP
     Route: 041
     Dates: start: 20090811, end: 20090811
  8. RITUXIMAB (RITUXIMAB) [Suspect]
     Indication: FOLLICLE CENTRE LYMPHOMA, FOLLICULAR GRADE I, II, III STAGE III
     Dosage: 250 MG/M2; QD; IV DRIP
     Route: 041
     Dates: start: 20090819, end: 20090819
  9. METHYCOBAL (MECOBALAMIN) TABLET [Concomitant]

REACTIONS (6)
  - WHITE BLOOD CELL COUNT DECREASED [None]
  - ABDOMINAL PAIN [None]
  - PLATELET COUNT DECREASED [None]
  - ILEUS [None]
  - VOMITING [None]
  - ANAEMIA [None]
